FAERS Safety Report 9906294 (Version 2)
Quarter: 2014Q1

REPORT INFORMATION
  Report Type: Spontaneous
  Country: US (occurrence: US)
  Receive Date: 20140218
  Receipt Date: 20140218
  Transmission Date: 20141002
  Serious: No
  Sender: FDA-Public Use
  Company Number: US-GILEAD-2012-0054213

PATIENT
  Sex: Female

DRUGS (2)
  1. LETAIRIS [Suspect]
     Indication: PULMONARY HYPERTENSION
     Dosage: 5 MG, UNK
     Route: 048
     Dates: start: 20120312, end: 20120416
  2. LETAIRIS [Suspect]
     Indication: PULMONARY EMBOLISM

REACTIONS (3)
  - Skin ulcer [Unknown]
  - Local swelling [Unknown]
  - Oedema [Unknown]
